FAERS Safety Report 7030762-9 (Version None)
Quarter: 2010Q4

REPORT INFORMATION
  Report Type: 
  Country: None (occurrence: None)
  Receive Date: 20101006
  Receipt Date: 20100922
  Transmission Date: 20110411
  Serious: No
  Sender: FDA-Public Use
  Company Number: US-PFIZER INC-2010088058

PATIENT
  Age: 87 Year
  Sex: Female

DRUGS (5)
  1. XALATAN [Suspect]
     Indication: OPEN ANGLE GLAUCOMA
     Dosage: 1 GTT, AT BEDTIME
     Route: 047
     Dates: start: 20041001, end: 20100813
  2. PILOCARPINE [Suspect]
     Indication: OPEN ANGLE GLAUCOMA
     Dosage: 1 GTT IN RIGHT EYE, 4X/DAY
     Route: 047
     Dates: start: 20041001, end: 20100813
  3. CALCIUM [Concomitant]
     Dosage: UNK
  4. VITAMIN E [Concomitant]
     Dosage: UNK
  5. ASCORBIC ACID [Concomitant]
     Dosage: UNK

REACTIONS (2)
  - DERMATITIS CONTACT [None]
  - REACTION TO PRESERVATIVES [None]
